FAERS Safety Report 8049848-5 (Version None)
Quarter: 2012Q1

REPORT INFORMATION
  Report Type: 
  Country: None (occurrence: None)
  Receive Date: 20120111
  Receipt Date: 20110518
  Transmission Date: 20120608
  Serious: No
  Sender: FDA-Public Use
  Company Number: 2011-02910

PATIENT

DRUGS (1)
  1. TUBERSOL [Suspect]
     Indication: TUBERCULIN TEST
     Dosage: S.C.
     Route: 058

REACTIONS (3)
  - PAIN IN EXTREMITY [None]
  - BACK PAIN [None]
  - INCORRECT ROUTE OF DRUG ADMINISTRATION [None]
